FAERS Safety Report 8727596 (Version 2)
Quarter: 2012Q4

REPORT INFORMATION
  Report Type: Report from Study
  Country: CZ (occurrence: CZ)
  Receive Date: 20120816
  Receipt Date: 20120914
  Transmission Date: 20130627
  Serious: Yes (Hospitalization)
  Sender: FDA-Public Use
  Company Number: CZ-PFIZER INC-2012195639

PATIENT
  Age: 72 Year
  Sex: Male
  Weight: 95 kg

DRUGS (6)
  1. GENOTROPIN [Suspect]
     Indication: HYPOPITUITARISM
     Dosage: 0.27 mg, 1xday, 7injections/week
     Route: 058
     Dates: start: 20031201
  2. HYDROCORTISONE [Concomitant]
     Indication: BLOOD CORTICOTROPHIN DECREASED
     Dosage: UNK
     Route: 048
     Dates: start: 19761103
  3. DESMOPRESSIN [Concomitant]
     Indication: BLOOD ANTIDIURETIC HORMONE DECREASED
     Dosage: UNK
     Route: 048
     Dates: start: 19761103
  4. LEVOTHYROXINE [Concomitant]
     Indication: BLOOD THYROID STIMULATING HORMONE DECREASED
     Dosage: UNK
     Route: 048
     Dates: start: 19770412
  5. TESTOSTERONE [Concomitant]
     Indication: HYPOGONADISM
     Dosage: UNK
     Dates: start: 19780113
  6. TESTOSTERONE UNDECANOATE [Concomitant]
     Indication: HYPOGONADISM
     Dosage: UNK
     Dates: start: 19920422

REACTIONS (1)
  - Fall [Recovered/Resolved]
